FAERS Safety Report 4908412-4 (Version None)
Quarter: 2006Q1

REPORT INFORMATION
  Report Type: 
  Country: None (occurrence: None)
  Receive Date: 20060210
  Receipt Date: 20060201
  Transmission Date: 20060701
  Serious: Yes (Hospitalization)
  Sender: FDA-Public Use
  Company Number: US-JNJFOC-20060105770

PATIENT

DRUGS (30)
  1. INFLIXIMAB [Suspect]
  2. INFLIXIMAB [Suspect]
  3. INFLIXIMAB [Suspect]
  4. INFLIXIMAB [Suspect]
  5. INFLIXIMAB [Suspect]
  6. INFLIXIMAB [Suspect]
  7. INFLIXIMAB [Suspect]
  8. INFLIXIMAB [Suspect]
  9. INFLIXIMAB [Suspect]
  10. INFLIXIMAB [Suspect]
  11. INFLIXIMAB [Suspect]
  12. INFLIXIMAB [Suspect]
  13. INFLIXIMAB [Suspect]
  14. INFLIXIMAB [Suspect]
  15. INFLIXIMAB [Suspect]
  16. INFLIXIMAB [Suspect]
  17. INFLIXIMAB [Suspect]
  18. INFLIXIMAB [Suspect]
  19. INFLIXIMAB [Suspect]
  20. INFLIXIMAB [Suspect]
  21. INFLIXIMAB [Suspect]
  22. INFLIXIMAB [Suspect]
  23. INFLIXIMAB [Suspect]
  24. INFLIXIMAB [Suspect]
  25. INFLIXIMAB [Suspect]
     Indication: CROHN'S DISEASE
  26. ACETAMINOPHEN [Concomitant]
  27. ACETAMINOPHEN [Concomitant]
     Indication: PREMEDICATION
  28. ANTIHISTAMINES [Concomitant]
  29. ANTIHISTAMINES [Concomitant]
     Indication: PREMEDICATION
  30. PREDNISONE [Concomitant]
     Indication: CROHN'S DISEASE

REACTIONS (4)
  - DRUG EXPOSURE DURING PREGNANCY [None]
  - PREMATURE BABY [None]
  - PULMONARY MALFORMATION [None]
  - RESPIRATORY DISORDER NEONATAL [None]
